FAERS Safety Report 20182477 (Version 1)
Quarter: 2021Q4

REPORT INFORMATION
  Report Type: Report from Study
  Country: GB (occurrence: GB)
  Receive Date: 20211214
  Receipt Date: 20211214
  Transmission Date: 20220303
  Serious: Yes (Hospitalization, Other)
  Sender: FDA-Public Use
  Company Number: GB-BRISTOL-MYERS SQUIBB COMPANY-BMS-2021-132648

PATIENT
  Age: 73 Year
  Sex: Male
  Weight: 52.4 kg

DRUGS (5)
  1. NIVOLUMAB [Suspect]
     Active Substance: NIVOLUMAB
     Indication: Hepatocellular carcinoma
     Dosage: 480 MILLIGRAM
     Route: 042
     Dates: start: 20210716, end: 20210902
  2. DOXORUBICIN [Suspect]
     Active Substance: DOXORUBICIN
     Indication: Hepatocellular carcinoma
     Dosage: 120 MILLIGRAM (ROUTE:TRANSARTERIAL)
     Route: 050
     Dates: start: 20210729
  3. ENSURE TWOCAL [Concomitant]
     Indication: Enteral nutrition
     Dosage: 200 MILLILITER 5X DAILY (ROUTE: PEG)
     Route: 050
  4. LANSOPRAZOLE [Concomitant]
     Active Substance: LANSOPRAZOLE
     Indication: Product used for unknown indication
     Dosage: 30 MILLIGRAM, QD (ROUTE: PEG)
     Route: 050
     Dates: start: 20210604
  5. PROCHLORPERAZINE [Concomitant]
     Active Substance: PROCHLORPERAZINE
     Indication: Nausea
     Dosage: 5 MG, TDS (ROUTE: PEG)
     Route: 050
     Dates: start: 20210616

REACTIONS (1)
  - COVID-19 pneumonia [Recovered/Resolved]

NARRATIVE: CASE EVENT DATE: 20211025
